FAERS Safety Report 7471964-7 (Version None)
Quarter: 2011Q2

REPORT INFORMATION
  Report Type: 
  Country: None (occurrence: None)
  Receive Date: 20110511
  Receipt Date: 20100812
  Transmission Date: 20111010
  Serious: No
  Sender: FDA-Public Use
  Company Number: A0877359A

PATIENT
  Sex: Female

DRUGS (3)
  1. TYKERB [Suspect]
     Dosage: 1000MG PER DAY
     Dates: start: 20100806
  2. HERCEPTIN [Suspect]
     Route: 065
  3. FOOD [Suspect]

REACTIONS (2)
  - DIARRHOEA [None]
  - COUGH [None]
